FAERS Safety Report 5290691-8 (Version None)
Quarter: 2007Q2

REPORT INFORMATION
  Report Type: 
  Country: None (occurrence: None)
  Receive Date: 20070405
  Receipt Date: 20070405
  Transmission Date: 20071010
  Serious: Yes (Hospitalization)
  Sender: FDA-Public Use
  Company Number: None

PATIENT
  Age: 56 Year
  Sex: Male
  Weight: 71 kg

DRUGS (2)
  1. TACROLIMUS [Suspect]
     Indication: IMMUNOSUPPRESSION
     Dosage: VARIABLE DOSE; PO; Q12H
     Route: 048
     Dates: start: 20000215
  2. TACROLIMUS [Suspect]
     Indication: TRANSPLANT
     Dosage: VARIABLE DOSE; PO; Q12H
     Route: 048
     Dates: start: 20000215

REACTIONS (2)
  - BLOOD CREATININE INCREASED [None]
  - INTERNATIONAL NORMALISED RATIO INCREASED [None]
